FAERS Safety Report 5902036-8 (Version None)
Quarter: 2008Q3

REPORT INFORMATION
  Report Type: 
  Country: None (occurrence: None)
  Receive Date: 20080909
  Receipt Date: 20080211
  Transmission Date: 20090109
  Serious: Yes (Other)
  Sender: FDA-Public Use
  Company Number: US-WYE-H02587608

PATIENT
  Age: 33 Year
  Sex: Female
  Weight: 58.57 kg

DRUGS (2)
  1. ADVIL [Suspect]
     Indication: ANALGESIA
     Dosage: ORAL ; 2 LIQUI-GELS X 1, ORAL
     Route: 048
     Dates: start: 20070101, end: 20070101
  2. ADVIL [Suspect]
     Indication: ANALGESIA
     Dosage: ORAL ; 2 LIQUI-GELS X 1, ORAL
     Route: 048
     Dates: start: 20071101, end: 20071101

REACTIONS (6)
  - ERYTHEMA [None]
  - HYPERSENSITIVITY [None]
  - LACRIMATION INCREASED [None]
  - PALPITATIONS [None]
  - SINUS CONGESTION [None]
  - SNEEZING [None]
